FAERS Safety Report 18343287 (Version 1)
Quarter: 2020Q4

REPORT INFORMATION
  Report Type: Spontaneous
  Country: US (occurrence: US)
  Receive Date: 20201005
  Receipt Date: 20201005
  Transmission Date: 20210113
  Serious: Yes (Other)
  Sender: FDA-Public Use
  Company Number: US-ELI_LILLY_AND_COMPANY-US201907011767

PATIENT
  Sex: Male

DRUGS (1)
  1. TRULICITY [Suspect]
     Active Substance: DULAGLUTIDE
     Indication: PRODUCT USED FOR UNKNOWN INDICATION
     Dosage: UNK UNK, UNKNOWN
     Route: 065

REACTIONS (7)
  - Cold sweat [Unknown]
  - Cardiac arrest [Unknown]
  - Sepsis [Unknown]
  - Pancreatitis [Unknown]
  - Dehydration [Unknown]
  - Diarrhoea [Unknown]
  - Acute kidney injury [Unknown]
